FAERS Safety Report 14412584 (Version 1)
Quarter: 2018Q1

REPORT INFORMATION
  Report Type: Spontaneous
  Country: US (occurrence: US)
  Receive Date: 20180119
  Receipt Date: 20180119
  Transmission Date: 20180509
  Serious: Yes (Hospitalization)
  Sender: FDA-Public Use
  Company Number: US-LEXICON PHARMACEUTICALS, INC-18-1606-00035

PATIENT
  Sex: Female

DRUGS (19)
  1. SANDOSTATIN [Concomitant]
     Active Substance: OCTREOTIDE ACETATE
  2. NAMBUTONE [Concomitant]
  3. FLEXERIL [Concomitant]
     Active Substance: CYCLOBENZAPRINE HYDROCHLORIDE
  4. MULTIVITAMIN [Concomitant]
     Active Substance: VITAMINS
  5. NORCO [Concomitant]
     Active Substance: ACETAMINOPHEN\HYDROCODONE BITARTRATE
  6. REQUIP [Concomitant]
     Active Substance: ROPINIROLE HYDROCHLORIDE
  7. TENORMIN [Concomitant]
     Active Substance: ATENOLOL
  8. CALCIUM CARBONATE VITAMIN [Concomitant]
  9. ATORVASTATIN CALCIUM. [Concomitant]
     Active Substance: ATORVASTATIN CALCIUM
  10. FENTANYL. [Concomitant]
     Active Substance: FENTANYL
  11. METHOTREXATE. [Concomitant]
     Active Substance: METHOTREXATE
  12. IRON [Concomitant]
     Active Substance: IRON
  13. LIDOCAINE. [Concomitant]
     Active Substance: LIDOCAINE
  14. PEPCID [Concomitant]
     Active Substance: FAMOTIDINE
  15. POTASSIUM CHLORIDE. [Concomitant]
     Active Substance: POTASSIUM CHLORIDE
  16. TELOTRISTAT ETHYL [Suspect]
     Active Substance: TELOTRISTAT ETHYL
     Indication: CARCINOID TUMOUR OF THE CAECUM
     Route: 048
     Dates: start: 20170628
  17. PREDNISONE. [Concomitant]
     Active Substance: PREDNISONE
  18. CHOLESTYRAMINE. [Concomitant]
     Active Substance: CHOLESTYRAMINE
  19. LASIX [Concomitant]
     Active Substance: FUROSEMIDE

REACTIONS (1)
  - Large intestinal haemorrhage [Unknown]
